FAERS Safety Report 11416177 (Version 1)
Quarter: 2015Q3

REPORT INFORMATION
  Report Type: Spontaneous
  Country: US (occurrence: US)
  Receive Date: 20150825
  Receipt Date: 20150825
  Transmission Date: 20151125
  Serious: No
  Sender: FDA-Public Use
  Company Number: US-TEVA-570604USA

PATIENT
  Age: 76 Year
  Sex: Female

DRUGS (4)
  1. FEXOFENADINE [Suspect]
     Active Substance: FEXOFENADINE\FEXOFENADINE HYDROCHLORIDE
     Indication: SEASONAL ALLERGY
     Dosage: 120 MILLIGRAM DAILY;
     Route: 048
     Dates: start: 201505, end: 20150608
  2. METOPROLOL [Concomitant]
     Active Substance: METOPROLOL
     Dates: start: 2000
  3. INDAPAMIDE. [Concomitant]
     Active Substance: INDAPAMIDE
     Dates: start: 2000
  4. METFORMIN [Concomitant]
     Active Substance: METFORMIN HYDROCHLORIDE
     Dates: start: 2012

REACTIONS (2)
  - Periorbital oedema [Not Recovered/Not Resolved]
  - Drug administered to patient of inappropriate age [Unknown]

NARRATIVE: CASE EVENT DATE: 201505
